FAERS Safety Report 6475694-X (Version None)
Quarter: 2009Q4

REPORT INFORMATION
  Report Type: 
  Country: None (occurrence: None)
  Receive Date: 20091204
  Receipt Date: 20091202
  Transmission Date: 20100525
  Serious: Yes (Other)
  Sender: FDA-Public Use
  Company Number: US-TEVA-213538USA

PATIENT
  Sex: Female
  Weight: 59.02 kg

DRUGS (3)
  1. PLAN B ONE-STEP [Suspect]
     Indication: POST COITAL CONTRACEPTION
     Route: 048
     Dates: start: 20091022, end: 20091022
  2. PLAN B ONE-STEP [Suspect]
     Route: 048
     Dates: start: 20091128, end: 20091128
  3. ORTHO TRI-CYCLEN [Suspect]
     Indication: CONTRACEPTION
     Route: 048
     Dates: start: 20091018, end: 20091116

REACTIONS (11)
  - ABORTION SPONTANEOUS [None]
  - CHILLS [None]
  - DRUG EXPOSURE DURING PREGNANCY [None]
  - DRUG INEFFECTIVE [None]
  - FATIGUE [None]
  - HEADACHE [None]
  - HIGH RISK SEXUAL BEHAVIOUR [None]
  - NAUSEA [None]
  - PELVIC PAIN [None]
  - PREGNANCY AFTER POST COITAL CONTRACEPTION [None]
  - VOMITING [None]
